FAERS Safety Report 19864455 (Version 1)
Quarter: 2021Q3

REPORT INFORMATION
  Report Type: Spontaneous
  Country: US (occurrence: US)
  Receive Date: 20210920
  Receipt Date: 20210920
  Transmission Date: 20211014
  Serious: Yes (Hospitalization)
  Sender: FDA-Public Use
  Company Number: None

PATIENT
  Age: 88 Year
  Sex: Male

DRUGS (1)
  1. HUMIRA [Suspect]
     Active Substance: ADALIMUMAB
     Indication: RHEUMATOID ARTHRITIS
     Dosage: OTHER FREQUENCY:EVERY14DAYS ;?
     Route: 058
     Dates: start: 20181204

REACTIONS (5)
  - Cerebrovascular accident [None]
  - Blood triglycerides increased [None]
  - Blood cholesterol increased [None]
  - Hypertension [None]
  - Coronary artery disease [None]

NARRATIVE: CASE EVENT DATE: 20210904
